FAERS Safety Report 24073891 (Version 2)
Quarter: 2024Q3

REPORT INFORMATION
  Report Type: Spontaneous
  Country: US (occurrence: US)
  Receive Date: 20240710
  Receipt Date: 20240913
  Transmission Date: 20241016
  Serious: No
  Sender: PFIZER
  Company Number: US-PFIZER INC-PV202400049180

PATIENT
  Age: 84 Year
  Sex: Female
  Weight: 62.14 kg

DRUGS (2)
  1. BRAFTOVI [Suspect]
     Active Substance: ENCORAFENIB
     Indication: Colon cancer stage IV
     Dosage: 225 MG, 1X/DAY (75MG 3CAPSULES ONCE A DAY)
     Route: 048
     Dates: start: 20240425
  2. BRAFTOVI [Suspect]
     Active Substance: ENCORAFENIB
     Dosage: 300 MG, DAILY (75 MG 4CAPS
     Route: 048

REACTIONS (1)
  - Malaise [Unknown]
